FAERS Safety Report 16059592 (Version 4)
Quarter: 2022Q4

REPORT INFORMATION
  Report Type: Report from Study
  Country: US (occurrence: US)
  Receive Date: 20190311
  Receipt Date: 20221011
  Transmission Date: 20230113
  Serious: Yes (Hospitalization, Other)
  Sender: FDA-Public Use
  Company Number: US-SHIRE-US201907648

PATIENT
  Age: 73 Year
  Sex: Female

DRUGS (5)
  1. TEDUGLUTIDE [Suspect]
     Active Substance: TEDUGLUTIDE
     Indication: Short-bowel syndrome
     Dosage: UNK UNK, QD
     Route: 050
     Dates: start: 20151109
  2. TEDUGLUTIDE [Suspect]
     Active Substance: TEDUGLUTIDE
     Indication: Short-bowel syndrome
     Dosage: UNK UNK, QD
     Route: 050
     Dates: start: 20151109
  3. TEDUGLUTIDE [Suspect]
     Active Substance: TEDUGLUTIDE
     Indication: Short-bowel syndrome
     Dosage: UNK UNK, QD
     Route: 050
     Dates: start: 20151109
  4. TEDUGLUTIDE [Suspect]
     Active Substance: TEDUGLUTIDE
     Indication: Short-bowel syndrome
     Dosage: UNK UNK, QD
     Route: 050
     Dates: start: 20151109
  5. TPN [Concomitant]
     Active Substance: AMINO ACIDS\DEXTROSE\ELECTROLYTES NOS\SOYBEAN OIL
     Indication: Product used for unknown indication
     Route: 065

REACTIONS (5)
  - Bacterial infection [Recovering/Resolving]
  - Device related infection [Unknown]
  - Dehydration [Recovering/Resolving]
  - Anaemia [Unknown]
  - Renal disorder [Unknown]

NARRATIVE: CASE EVENT DATE: 20190301
